FAERS Safety Report 10558205 (Version 1)
Quarter: 2014Q4

REPORT INFORMATION
  Report Type: Report from Study
  Country: BR (occurrence: BR)
  Receive Date: 20141031
  Receipt Date: 20141031
  Transmission Date: 20150529
  Serious: Yes (Death, Hospitalization, Other)
  Sender: FDA-Public Use
  Company Number: BR-BAYER-2014-155749

PATIENT
  Age: 47 Year
  Sex: Male

DRUGS (1)
  1. NEXAVAR [Suspect]
     Active Substance: SORAFENIB
     Dosage: UNK
     Route: 048
     Dates: end: 20140918

REACTIONS (4)
  - Anal haemorrhage [Not Recovered/Not Resolved]
  - Tumour rupture [Fatal]
  - Tumour haemorrhage [Fatal]
  - Aphagia [Not Recovered/Not Resolved]

NARRATIVE: CASE EVENT DATE: 20140918
